FAERS Safety Report 15282169 (Version 1)
Quarter: 2018Q3

REPORT INFORMATION
  Report Type: Spontaneous
  Country: FR (occurrence: FR)
  Receive Date: 20180815
  Receipt Date: 20180815
  Transmission Date: 20181010
  Serious: Yes (Hospitalization)
  Sender: FDA-Public Use
  Company Number: FR-ASTRAZENECA-2018SF01757

PATIENT
  Age: 80 Year
  Sex: Female

DRUGS (6)
  1. PYOSTACINE [Suspect]
     Active Substance: PRISTINAMYCIN
     Indication: TOOTH ABSCESS
     Route: 048
     Dates: start: 20180421, end: 20180426
  2. FUCIDINE [Suspect]
     Active Substance: FUSIDIC ACID
     Indication: SKIN INFECTION
     Route: 048
     Dates: start: 20180629
  3. OMEPRAZOLE. [Suspect]
     Active Substance: OMEPRAZOLE
     Indication: PROPHYLAXIS AGAINST GASTROINTESTINAL ULCER
     Route: 048
     Dates: start: 20180421, end: 20180426
  4. AERIUS [Suspect]
     Active Substance: DESLORATADINE
     Indication: RASH PRURITIC
     Route: 048
     Dates: start: 20180529, end: 201806
  5. ARCOXIA [Suspect]
     Active Substance: ETORICOXIB
     Indication: OSTEOARTHRITIS
     Route: 048
     Dates: start: 20180421, end: 20180426
  6. DOLIPRANE [Suspect]
     Active Substance: ACETAMINOPHEN
     Indication: ANALGESIC INTERVENTION SUPPORTIVE THERAPY
     Dosage: NON PR???CIS???E
     Route: 048
     Dates: start: 20180628, end: 201807

REACTIONS (1)
  - Drug reaction with eosinophilia and systemic symptoms [Recovering/Resolving]

NARRATIVE: CASE EVENT DATE: 201805
